FAERS Safety Report 12058500 (Version 1)
Quarter: 2016Q1

REPORT INFORMATION
  Report Type: Spontaneous
  Country: PL (occurrence: PL)
  Receive Date: 20160210
  Receipt Date: 20160210
  Transmission Date: 20160526
  Serious: Yes (Life-Threatening)
  Sender: FDA-Public Use
  Company Number: PL-BAUSCH-BL-2016-003182

PATIENT
  Age: 36 Year
  Sex: Male
  Weight: 97 kg

DRUGS (1)
  1. CORHYDRON 100 MG [Suspect]
     Active Substance: HYDROCORTISONE SODIUM SUCCINATE
     Indication: RASH
     Route: 042
     Dates: start: 20151014, end: 20151014

REACTIONS (6)
  - Asthenia [Recovered/Resolved]
  - Altered state of consciousness [Recovered/Resolved]
  - Hyperhidrosis [Recovering/Resolving]
  - Hypopnoea [Recovering/Resolving]
  - Blood pressure decreased [None]
  - Pallor [Recovering/Resolving]

NARRATIVE: CASE EVENT DATE: 20151014
